FAERS Safety Report 16381322 (Version 2)
Quarter: 2020Q3

REPORT INFORMATION
  Report Type: Spontaneous
  Country: US (occurrence: US)
  Receive Date: 20190603
  Receipt Date: 20200819
  Transmission Date: 20201102
  Serious: No
  Sender: FDA-Public Use
  Company Number: US-TEVA-2019-US-1050853

PATIENT
  Age: 65 Year
  Sex: Female

DRUGS (20)
  1. MIRALAX [Concomitant]
     Active Substance: POLYETHYLENE GLYCOL 3350
  2. KRILL OIL [Concomitant]
     Active Substance: DIETARY SUPPLEMENT\KRILL OIL
  3. OMEPRAZOLE. [Concomitant]
     Active Substance: OMEPRAZOLE
  4. COPAXONE [Suspect]
     Active Substance: GLATIRAMER ACETATE
     Indication: MULTIPLE SCLEROSIS
     Route: 058
     Dates: start: 20181110
  5. ALEVE [Concomitant]
     Active Substance: NAPROXEN SODIUM
  6. ATORVASTATIN [Concomitant]
     Active Substance: ATORVASTATIN
  7. PROBIOTIC [Concomitant]
     Active Substance: PROBIOTICS NOS
  8. BUPROPION. [Concomitant]
     Active Substance: BUPROPION
  9. LEVOTHYROXINE. [Concomitant]
     Active Substance: LEVOTHYROXINE
  10. MODAFINIL. [Concomitant]
     Active Substance: MODAFINIL
  11. MULTIVITAMINE [Concomitant]
  12. SENNA [Concomitant]
     Active Substance: SENNA LEAF\SENNOSIDES\SENNOSIDES A AND B
  13. TOPIRAMATE. [Concomitant]
     Active Substance: TOPIRAMATE
  14. BACLOFEN. [Concomitant]
     Active Substance: BACLOFEN
  15. LIDOCAINE. [Concomitant]
     Active Substance: LIDOCAINE
  16. LINZESS [Concomitant]
     Active Substance: LINACLOTIDE
  17. MELATONIN [Concomitant]
     Active Substance: MELATONIN
  18. QUETIAPINE. [Concomitant]
     Active Substance: QUETIAPINE
  19. SIMVASTATINE [Concomitant]
     Active Substance: SIMVASTATIN
  20. VITAMIN D3 [Concomitant]
     Active Substance: CHOLECALCIFEROL

REACTIONS (4)
  - Fall [Not Recovered/Not Resolved]
  - Fatigue [Not Recovered/Not Resolved]
  - Loss of personal independence in daily activities [Not Recovered/Not Resolved]
  - Memory impairment [Not Recovered/Not Resolved]
